FAERS Safety Report 23272965 (Version 3)
Quarter: 2024Q1

REPORT INFORMATION
  Report Type: Spontaneous
  Country: CO (occurrence: CO)
  Receive Date: 20231207
  Receipt Date: 20240130
  Transmission Date: 20240410
  Serious: No
  Sender: FDA-Public Use
  Company Number: CO-PFIZER INC-PV202300191741

PATIENT
  Age: 52 Year
  Sex: Female

DRUGS (2)
  1. GENOTROPIN [Suspect]
     Active Substance: SOMATROPIN
     Indication: Growth disorder
     Dosage: 1.2 MG, DAILY
     Route: 058
  2. GENOTROPIN [Suspect]
     Active Substance: SOMATROPIN
     Indication: Developmental delay

REACTIONS (3)
  - Drug dose omission by device [Unknown]
  - Device breakage [Unknown]
  - Expired device used [Unknown]

NARRATIVE: CASE EVENT DATE: 20231120
